FAERS Safety Report 12083194 (Version 2)
Quarter: 2016Q1

REPORT INFORMATION
  Report Type: Spontaneous
  Country: US (occurrence: US)
  Receive Date: 20160217
  Receipt Date: 20160318
  Transmission Date: 20160526
  Serious: Yes (Other)
  Sender: FDA-Public Use
  Company Number: US-BAYER-2016-026362

PATIENT
  Sex: Female

DRUGS (1)
  1. BETASERON [Suspect]
     Active Substance: INTERFERON BETA-1B
     Dosage: UNK

REACTIONS (6)
  - Multiple sclerosis [None]
  - Depression [None]
  - Crying [None]
  - CSF oligoclonal band present [None]
  - Depressed mood [None]
  - Drug ineffective [None]
